FAERS Safety Report 4818584-8 (Version None)
Quarter: 2005Q4

REPORT INFORMATION
  Report Type: 
  Country: None (occurrence: None)
  Receive Date: 20051027
  Receipt Date: 20051017
  Transmission Date: 20060501
  Serious: Yes (Death)
  Sender: FDA-Public Use
  Company Number: PERC20050044

PATIENT
  Age: 53 Year
  Sex: Female
  Weight: 68.0396 kg

DRUGS (2)
  1. PERCOCET [Suspect]
     Dosage: BINGE PO
     Route: 048
     Dates: end: 20041101
  2. ETHANOL [Suspect]
     Dosage: BINGE PO
     Route: 048
     Dates: start: 20041109, end: 20041111

REACTIONS (20)
  - ACCIDENTAL DEATH [None]
  - ALCOHOL POISONING [None]
  - ARTERIAL STENOSIS [None]
  - ARTERIOSCLEROSIS CORONARY ARTERY [None]
  - CELL DEATH [None]
  - CEREBRAL DISORDER [None]
  - CONTUSION [None]
  - DIVERTICULUM INTESTINAL [None]
  - DRUG TOXICITY [None]
  - DRY EYE [None]
  - EXCORIATION [None]
  - GASTRIC DISORDER [None]
  - HAEMATEMESIS [None]
  - HEPATIC CONGESTION [None]
  - PULMONARY CONGESTION [None]
  - RENAL DISORDER [None]
  - SELF-MEDICATION [None]
  - SPLEEN CONGESTION [None]
  - THYROID ATROPHY [None]
  - VENTRICULAR HYPERTROPHY [None]
